FAERS Safety Report 8398681-3 (Version None)
Quarter: 2012Q2

REPORT INFORMATION
  Report Type: 
  Country: None (occurrence: None)
  Receive Date: 20120531
  Receipt Date: 20120524
  Transmission Date: 20120825
  Serious: Yes (Other)
  Sender: FDA-Public Use
  Company Number: IE-BAYER-2012-051426

PATIENT
  Age: 45 Year
  Sex: Male

DRUGS (4)
  1. CIPROFLOXACIN HCL [Suspect]
     Indication: LOWER RESPIRATORY TRACT INFECTION
     Dosage: 250 MG, QID
     Route: 048
     Dates: start: 20120318, end: 20120320
  2. IBUPROFEN [Concomitant]
     Indication: INFLUENZA
     Route: 048
  3. ACETAMINOPHEN [Concomitant]
     Indication: INFLUENZA
     Route: 048
  4. ZOLPIDEM TARTRATE [Concomitant]
     Indication: INFLUENZA
     Dosage: OCCASIONALLY 10 MG
     Route: 048

REACTIONS (4)
  - NEGATIVE THOUGHTS [None]
  - ANXIETY [None]
  - PSYCHIATRIC SYMPTOM [None]
  - THINKING ABNORMAL [None]
